FAERS Safety Report 24464874 (Version 1)
Quarter: 2024Q4

REPORT INFORMATION
  Report Type: Report from Study
  Country: US (occurrence: US)
  Receive Date: 20241018
  Receipt Date: 20241018
  Transmission Date: 20250115
  Serious: No
  Sender: ROCHE
  Company Number: US-ROCHE-3499502

PATIENT
  Age: 67 Year
  Sex: Male

DRUGS (2)
  1. XOLAIR [Suspect]
     Active Substance: OMALIZUMAB
     Indication: Idiopathic urticaria
     Dosage: USES BOTH 150MG AND 75MG PFS?300 MG/2 ML, 2 SYRINGES, REFILLS 1 YEAR
     Route: 058
     Dates: start: 2020
  2. XOLAIR [Suspect]
     Active Substance: OMALIZUMAB
     Indication: Eosinophilic cellulitis

REACTIONS (4)
  - Pain [Unknown]
  - Needle issue [Unknown]
  - Intentional device misuse [Unknown]
  - Contusion [Unknown]

NARRATIVE: CASE EVENT DATE: 20240109
